FAERS Safety Report 8812633 (Version 1)
Quarter: 2012Q4

REPORT INFORMATION
  Report Type: 
  Country: JP (occurrence: JP)
  Receive Date: 20120927
  Receipt Date: 20120927
  Transmission Date: 20130627
  Serious: Yes (Death, Other)
  Sender: FDA-Public Use
  Company Number: PHHY2012JP076512

PATIENT
  Age: 60 Year
  Sex: Female

DRUGS (6)
  1. DIOVAN [Suspect]
     Indication: HYPERTENSION
     Dosage: 120 mg to 160 mg daily
     Route: 048
     Dates: end: 20120830
  2. MYSLEE [Concomitant]
     Dosage: 1 DF, UNK
     Route: 048
     Dates: end: 20120908
  3. THYRADIN S [Concomitant]
     Dosage: 1 DF, UNK
     Route: 048
     Dates: end: 20120908
  4. CLARITH [Concomitant]
     Dosage: 1 DF, UNK
     Route: 048
     Dates: end: 20120910
  5. PHENOBAL [Concomitant]
     Dosage: 6 DF, UNK
     Route: 048
     Dates: end: 20120910
  6. DEPAS [Concomitant]
     Dosage: 1 DF, UNK
     Route: 048
     Dates: end: 20120908

REACTIONS (3)
  - Death [Fatal]
  - White blood cell count decreased [Not Recovered/Not Resolved]
  - Platelet count decreased [Not Recovered/Not Resolved]
